FAERS Safety Report 5817668-5 (Version None)
Quarter: 2008Q3

REPORT INFORMATION
  Report Type: 
  Country: None (occurrence: None)
  Receive Date: 20080722
  Receipt Date: 20080715
  Transmission Date: 20090109
  Serious: Yes (Life-Threatening)
  Sender: FDA-Public Use
  Company Number: ES-WYE-H05131808

PATIENT
  Age: 79 Year
  Sex: Male

DRUGS (3)
  1. TRANGOREX [Suspect]
     Dosage: DOSE AND FREQUENCY NOT SPECIFIED
     Route: 048
     Dates: end: 20080213
  2. ATENOLOL [Interacting]
     Route: 048
     Dates: end: 20080213
  3. DIGOXIN [Interacting]
     Route: 048
     Dates: end: 20080213

REACTIONS (2)
  - BRADYCARDIA [None]
  - DRUG INTERACTION [None]
